FAERS Safety Report 4668548-2 (Version None)
Quarter: 2005Q2

REPORT INFORMATION
  Report Type: 
  Country: None (occurrence: None)
  Receive Date: 20050519
  Receipt Date: 20050509
  Transmission Date: 20051028
  Serious: Yes (Other)
  Sender: FDA-Public Use
  Company Number: 2005069296

PATIENT
  Age: 31 Year
  Sex: Male

DRUGS (5)
  1. GEODON [Suspect]
     Indication: ILL-DEFINED DISORDER
     Dosage: (40 MG, ONCE), ORAL
     Route: 048
     Dates: start: 20050425, end: 20050425
  2. CARNITINE (CARNITINE) [Concomitant]
  3. LORAZEPAM [Concomitant]
  4. GABAPENTIN [Concomitant]
  5. ALL OTHER NON-THERAPEUTIC PRODUCTS (ALL OTHER NON-THERAPEUTIC PRODUCTS [Concomitant]

REACTIONS (2)
  - ACUTE MYOCARDIAL INFARCTION [None]
  - ARTERIOGRAM CORONARY [None]
